FAERS Safety Report 7846771 (Version 6)
Quarter: 2013Q1

REPORT INFORMATION
  Report Type: Report from Study
  Country: JP (occurrence: JP)
  Receive Date: 20110308
  Receipt Date: 20130313
  Transmission Date: 20140127
  Serious: Yes (Other)
  Sender: FDA-Public Use
  Company Number: JP-NAPPMUNDI-MAG-2011-0001413

PATIENT
  Age: 76 Year
  Sex: Female

DRUGS (16)
  1. OXYCODONE HCL [Suspect]
     Indication: CANCER PAIN
     Dosage: 40 MG, DAILY
     Route: 048
     Dates: start: 20101102, end: 20101111
  2. OXYCODONE HCL [Suspect]
     Dosage: 10 MG, DAILY
     Route: 048
     Dates: start: 20101022
  3. LOXONIN [Concomitant]
     Indication: CANCER PAIN
     Dosage: 60 MG, DAILY
     Route: 048
     Dates: start: 20101102, end: 20101111
  4. COCARL [Concomitant]
     Indication: CANCER PAIN
     Dosage: UNK
     Route: 048
  5. LYRICA [Concomitant]
     Indication: CANCER PAIN
     Dosage: UNK
     Route: 048
  6. SEROQUEL [Concomitant]
     Dosage: UNK
     Route: 048
  7. PURSENNID                          /00571902/ [Concomitant]
     Indication: CONSTIPATION
     Dosage: UNK
     Route: 048
  8. PURSENNID                          /00571902/ [Concomitant]
     Indication: CONSTIPATION PROPHYLAXIS
  9. SERENACE [Concomitant]
     Dosage: UNK
     Route: 048
  10. MAGNESIUM OXIDE [Concomitant]
     Indication: CONSTIPATION
     Dosage: UNK
     Route: 048
  11. MAGNESIUM OXIDE [Concomitant]
     Indication: PROPHYLAXIS
  12. CALONAL [Concomitant]
     Indication: CANCER PAIN
     Dosage: UNK
     Route: 048
  13. RISPERDAL [Concomitant]
     Dosage: UNK
     Route: 048
  14. AMLODIN [Concomitant]
     Dosage: UNK
     Route: 048
  15. BUP-4 [Concomitant]
     Dosage: UNK
     Route: 048
  16. PROCHLORPERAZINE [Concomitant]
     Indication: PROPHYLAXIS

REACTIONS (6)
  - Enterobacter infection [Recovered/Resolved]
  - Constipation [Recovering/Resolving]
  - Delirium [None]
  - Somnolence [None]
  - Nausea [None]
  - Vomiting [None]
